FAERS Safety Report 7707896-6 (Version None)
Quarter: 2011Q3

REPORT INFORMATION
  Report Type: 
  Country: None (occurrence: None)
  Receive Date: 20110824
  Receipt Date: 20110818
  Transmission Date: 20111222
  Serious: Yes (Life-Threatening, Hospitalization, Other)
  Sender: FDA-Public Use
  Company Number: AU-MERCK-1105USA01549

PATIENT
  Age: 72 Year
  Sex: Male
  Weight: 95 kg

DRUGS (20)
  1. ADALAT [Concomitant]
     Dosage: 1 MANE
     Route: 048
  2. ARISTOCORT (TRIAMCINOLONE ACETONIDE) [Concomitant]
     Dosage: APPLY B.D.
     Route: 061
  3. COUMADIN [Concomitant]
     Dosage: AS DIRECTED
     Route: 048
  4. COUMADIN [Concomitant]
     Dosage: 1 NOCTE AS DIRECTED
     Route: 048
  5. CALCIUM CARBONATE [Concomitant]
     Dosage: 1 NOCTE C.C.
     Route: 048
  6. PLAQUENIL [Concomitant]
     Dosage: 1 B.D.
     Route: 048
  7. BLUE LIZARD SORBOLENE CREAM [Concomitant]
     Route: 061
  8. ARAVA [Concomitant]
     Dosage: 1 NOCTE
     Route: 048
  9. NOTEN [Concomitant]
     Dosage: 1/2 B.D. M.D.U.
     Route: 048
  10. PANADOL OSTEO [Concomitant]
     Dosage: 2 T.I.D. P.R.N.
     Route: 065
  11. ASPIRIN [Concomitant]
     Dosage: 1 MANE
     Route: 048
  12. VYTORIN [Suspect]
     Route: 048
  13. LIPITOR [Concomitant]
     Dosage: 1 NOCTE
     Route: 048
  14. NEXIUM [Concomitant]
     Dosage: 1 DAILY M.D.U.
     Route: 048
  15. NITROLINGUAL [Concomitant]
     Dosage: 1 PUFF S/L P.R.N.
     Route: 060
  16. PREDNISOLONE [Concomitant]
     Dosage: AS DIRECTED
     Route: 048
  17. ATACAND HCT [Concomitant]
     Dosage: 1 MANE
     Route: 048
  18. OSTEVIT D [Concomitant]
     Dosage: 2 MANE C.C.
     Route: 048
  19. SULFASALAZINE [Concomitant]
     Dosage: 2 B.D.
     Route: 048
  20. COUMADIN [Concomitant]
     Dosage: AS DIRECTED
     Route: 048

REACTIONS (6)
  - CARDIAC DISORDER [None]
  - ARTHROPATHY [None]
  - ONYCHOMYCOSIS [None]
  - PNEUMONIA [None]
  - MYOSITIS [None]
  - CATARACT [None]
